FAERS Safety Report 15330612 (Version 3)
Quarter: 2019Q1

REPORT INFORMATION
  Report Type: Spontaneous
  Country: PL (occurrence: PL)
  Receive Date: 20180829
  Receipt Date: 20190110
  Transmission Date: 20190417
  Serious: Yes (Hospitalization)
  Sender: FDA-Public Use
  Company Number: PHHY2017PL204645

PATIENT
  Age: 67 Year
  Sex: Female
  Weight: 65 kg

DRUGS (13)
  1. METHOTREXATE. [Concomitant]
     Active Substance: METHOTREXATE
     Indication: RHEUMATOID ARTHRITIS
     Dosage: 15 MG, 1X/DAY(QS)
     Route: 058
     Dates: start: 20161020, end: 20171020
  2. VALSARTAN. [Concomitant]
     Active Substance: VALSARTAN
     Indication: HYPERTENSION
     Dosage: 160 MG, 1X/DAY(QD)
     Route: 048
     Dates: start: 20160624
  3. ETANERCEPT [Suspect]
     Active Substance: ETANERCEPT
     Indication: RHEUMATOID ARTHRITIS
     Dosage: 50 MG, QW  (EVERY 7 DAYS)
     Route: 058
     Dates: start: 20150211, end: 20171020
  4. METHYLPREDNISOLONE. [Suspect]
     Active Substance: METHYLPREDNISOLONE
     Indication: RHEUMATOID ARTHRITIS
     Dosage: 4 MG, QD
     Route: 048
     Dates: end: 20171020
  5. METHYLPREDNISOLONE. [Suspect]
     Active Substance: METHYLPREDNISOLONE
     Dosage: 4 MG, QD
     Route: 048
     Dates: end: 20171020
  6. METYPRED [Concomitant]
     Active Substance: METHYLPREDNISOLONE
     Indication: RHEUMATOID ARTHRITIS
     Dosage: 4 MG, EVERY 2 DAYS
     Route: 048
     Dates: start: 20160801, end: 20171020
  7. METYPRED [Concomitant]
     Active Substance: METHYLPREDNISOLONE
     Dosage: 2 MG, EVERY 2 DAYS
     Route: 048
     Dates: start: 20160802, end: 20171020
  8. CALCIUM CARBONATE. [Concomitant]
     Active Substance: CALCIUM CARBONATE
     Indication: OSTEOPOROSIS
     Dosage: 500 MG, 1X/DAY(QD)
     Route: 048
     Dates: start: 2011
  9. HYDROCHLOROTHIAZIDE. [Concomitant]
     Active Substance: HYDROCHLOROTHIAZIDE
     Indication: HYPERTENSION
     Dosage: 25 MG, 1X/DAY (QD)
     Route: 048
     Dates: start: 20160624
  10. KALIPOZ [Concomitant]
     Active Substance: POTASSIUM CHLORIDE
     Indication: SUPPLEMENTATION THERAPY
     Dosage: 1500 MG, 2X/DAY(BID)
     Route: 048
     Dates: start: 2011
  11. RISENDROS [Concomitant]
     Indication: OSTEOPOROSIS
     Dosage: 35 MG, 1X/DAY (QS)
     Route: 048
     Dates: start: 2011
  12. ETANERCEPT [Suspect]
     Active Substance: ETANERCEPT
     Indication: PSORIASIS
     Dosage: 50 MG, WEEKLY (EVERY 7 DAYS)
     Route: 058
     Dates: start: 20150211, end: 20171020
  13. VIGANTOLETTEN [Concomitant]
     Active Substance: CHOLECALCIFEROL
     Indication: OSTEOPOROSIS
     Dosage: 1000 IU, 1X/DAY(QD)
     Route: 048
     Dates: start: 2011

REACTIONS (1)
  - Multiple fractures [Recovered/Resolved]

NARRATIVE: CASE EVENT DATE: 20171020
